FAERS Safety Report 6392195-8 (Version None)
Quarter: 2009Q4

REPORT INFORMATION
  Report Type: 
  Country: None (occurrence: None)
  Receive Date: 20091007
  Receipt Date: 20090429
  Transmission Date: 20100525
  Serious: Yes (Other)
  Sender: FDA-Public Use
  Company Number: BR-PFIZER INC-2009206240

PATIENT

DRUGS (3)
  1. FIBRASE [Suspect]
     Indication: PROMOTION OF WOUND HEALING
     Dosage: UNK
     Route: 061
     Dates: start: 19970101
  2. CALCIUM [Concomitant]
     Indication: OSTEOPOROSIS
     Dosage: UNK
     Dates: start: 19860101
  3. APROVEL [Concomitant]
     Indication: HYPERTENSION
     Dosage: UNK
     Dates: start: 20030101

REACTIONS (3)
  - HYPERSENSITIVITY [None]
  - NODULE [None]
  - SCAR [None]
